FAERS Safety Report 4358927-5 (Version None)
Quarter: 2004Q2

REPORT INFORMATION
  Report Type: 
  Country: None (occurrence: None)
  Receive Date: 20040511
  Receipt Date: 20040426
  Transmission Date: 20050107
  Serious: Yes (Other)
  Sender: FDA-Public Use
  Company Number: 2004-0007016

PATIENT
  Age: 32 Year
  Sex: Female
  Weight: 72 kg

DRUGS (5)
  1. VIREAD [Suspect]
     Indication: HIV INFECTION
     Dosage: 300 MG, 1 IN 1 D, ORAL
     Route: 048
     Dates: start: 20020312
  2. VIRAMUNE [Suspect]
     Indication: HIV INFECTION
     Dosage: 200 MG, 1 IN 1 D, ORAL
     Route: 048
     Dates: start: 20020312
  3. KALETRA [Suspect]
     Indication: HIV INFECTION
     Dosage: ORAL
     Route: 048
     Dates: start: 20010312
  4. ACYCLOVIR [Concomitant]
  5. FRUMIL (FRUMIL) [Concomitant]

REACTIONS (7)
  - DIARRHOEA [None]
  - DRUG INTERACTION [None]
  - DYSGEUSIA [None]
  - NIGHT SWEATS [None]
  - PARAESTHESIA [None]
  - PYREXIA [None]
  - RASH MACULO-PAPULAR [None]
